FAERS Safety Report 7093053-6 (Version None)
Quarter: 2010Q4

REPORT INFORMATION
  Report Type: 
  Country: None (occurrence: None)
  Receive Date: 20101105
  Receipt Date: 20101105
  Transmission Date: 20110411
  Serious: No
  Sender: FDA-Public Use
  Company Number: None

PATIENT
  Age: 58 Year
  Sex: Female

DRUGS (10)
  1. KETOPROFEN [Suspect]
     Indication: LIVER DISORDER
     Dates: start: 20060805, end: 20060805
  2. PRO-ENDORPHIN [Suspect]
     Indication: LIVER DISORDER
     Dates: start: 20060320, end: 20060806
  3. TESTRON (TESTOSTERONE) [Suspect]
     Indication: LIVER DISORDER
     Dates: start: 20060320, end: 20060806
  4. ATENOLOL [Concomitant]
  5. TRIAMCINOLONE NASAL SPRAY [Concomitant]
  6. CALCIUM [Concomitant]
  7. NADH (3/UN/2006-8/6/06) [Concomitant]
  8. JARRO-DOPHILUS [Concomitant]
  9. CHOLINE COCKTAIL ENERGY DRINK [Concomitant]
  10. SLIM CARB NEUTRALIZER FAT BLOCKER [Concomitant]

REACTIONS (6)
  - DEHYDRATION [None]
  - FATIGUE [None]
  - HEPATOTOXICITY [None]
  - OCULAR ICTERUS [None]
  - TINNITUS [None]
  - URINE COLOUR ABNORMAL [None]
